FAERS Safety Report 12083463 (Version 1)
Quarter: 2016Q1

REPORT INFORMATION
  Report Type: Spontaneous
  Country: US (occurrence: None)
  Receive Date: 20160216
  Receipt Date: 20160216
  Transmission Date: 20160526
  Serious: No
  Sender: FDA-Public Use
  Company Number: None

PATIENT
  Age: 71 Year

DRUGS (3)
  1. METFORMIN [Suspect]
     Active Substance: METFORMIN HYDROCHLORIDE
  2. PIOGLITAZONE. [Suspect]
     Active Substance: PIOGLITAZONE
  3. GLIPISIDE [Suspect]
     Active Substance: GLIPIZIDE

REACTIONS (3)
  - Dizziness [None]
  - Movement disorder [None]
  - Weight increased [None]
